FAERS Safety Report 5732921-1 (Version None)
Quarter: 2008Q2

REPORT INFORMATION
  Report Type: 
  Country: None (occurrence: None)
  Receive Date: 20080509
  Receipt Date: 20080328
  Transmission Date: 20081010
  Serious: No
  Sender: FDA-Public Use
  Company Number: A0718110A

PATIENT
  Age: 45 Year
  Sex: Female

DRUGS (2)
  1. COREG CR [Suspect]
     Indication: ARRHYTHMIA
     Dosage: 10MG PER DAY
     Route: 048
     Dates: start: 20080213, end: 20080227
  2. UNKNOWN MEDICATION [Concomitant]

REACTIONS (8)
  - CHILLS [None]
  - DIARRHOEA [None]
  - GLOSSODYNIA [None]
  - HYPOAESTHESIA ORAL [None]
  - NAUSEA [None]
  - PYREXIA [None]
  - RASH [None]
  - TONGUE ERUPTION [None]
